FAERS Safety Report 10615655 (Version 1)
Quarter: 2014Q4

REPORT INFORMATION
  Report Type: Spontaneous
  Country: None (occurrence: None)
  Receive Date: 20141125
  Receipt Date: 20141125
  Transmission Date: 20150529
  Serious: Yes (Other)
  Sender: FDA-Public Use
  Company Number: MAC-14-084

PATIENT
  Age: 27 Year
  Sex: Female
  Weight: 50 kg

DRUGS (2)
  1. METHERGINE [Suspect]
     Active Substance: METHYLERGONOVINE MALEATE
     Indication: ABORTION
     Dosage: 6 TABLETS
     Route: 048
  2. THYREX (LEVOTHYROXINE SODIUM) [Concomitant]

REACTIONS (4)
  - Caesarean section [None]
  - Placenta praevia [None]
  - Exposure during pregnancy [None]
  - Intentional overdose [None]
